FAERS Safety Report 13002910 (Version 1)
Quarter: 2016Q4

REPORT INFORMATION
  Report Type: Spontaneous
  Country: US (occurrence: US)
  Receive Date: 20161206
  Receipt Date: 20161206
  Transmission Date: 20170207
  Serious: No
  Sender: FDA-Public Use
  Company Number: US-JNJFOC-20161025034

PATIENT
  Age: 61 Year
  Sex: Female
  Weight: 114.31 kg

DRUGS (2)
  1. INVOKANA [Suspect]
     Active Substance: CANAGLIFLOZIN
     Indication: TYPE 2 DIABETES MELLITUS
     Route: 048
     Dates: start: 20161013, end: 201610
  2. FARXIGA [Concomitant]
     Active Substance: DAPAGLIFLOZIN PROPANEDIOL
     Indication: TYPE 2 DIABETES MELLITUS
     Route: 065

REACTIONS (7)
  - Skin burning sensation [Recovering/Resolving]
  - Urine output increased [Not Recovered/Not Resolved]
  - Skin disorder [Recovering/Resolving]
  - Pruritus generalised [Recovering/Resolving]
  - Vulvovaginal mycotic infection [Recovering/Resolving]
  - Abnormal loss of weight [Not Recovered/Not Resolved]
  - Rash macular [Not Recovered/Not Resolved]

NARRATIVE: CASE EVENT DATE: 201610
